FAERS Safety Report 5131972-8 (Version None)
Quarter: 2006Q4

REPORT INFORMATION
  Report Type: 
  Country: None (occurrence: None)
  Receive Date: 20061017
  Receipt Date: 20061004
  Transmission Date: 20070319
  Serious: Yes (Other)
  Sender: FDA-Public Use
  Company Number: 2006S1006521

PATIENT
  Age: 77 Year
  Sex: Female

DRUGS (17)
  1. FENTANYL TRANSDERMAL SYSTEM [Suspect]
     Indication: SURGERY
     Dosage: 100 UG/HR; Q3D; TDER
     Route: 062
     Dates: start: 20060616, end: 20060709
  2. ASPIRIN [Concomitant]
  3. BISACODYL (CON.) [Concomitant]
  4. CALCIUM W/MAGNESIUM (CON.) [Concomitant]
  5. DOCUSATE SODIUM (CON.) [Concomitant]
  6. DIFLUNISAL (CON.) [Concomitant]
  7. ESTRATONE (CON.) [Concomitant]
  8. ALENDRONATE SODIUM (CON.) [Concomitant]
  9. ESCITALOPRAM (CON.) [Concomitant]
  10. VITAMINS (CON.) [Concomitant]
  11. OXYBUTYNIN (CON.) [Concomitant]
  12. OMEPRAZOLE (CON.) [Concomitant]
  13. QUININE (CON.) [Concomitant]
  14. LEVOTHYROXINE (CON.) [Concomitant]
  15. VITAMIN E (CON.) [Concomitant]
  16. ALPRAZOLAM (CON.) [Concomitant]
  17. SIMVASTATIN (CON.) [Concomitant]

REACTIONS (3)
  - ANXIETY [None]
  - DRUG WITHDRAWAL SYNDROME [None]
  - PHARMACEUTICAL PRODUCT COMPLAINT [None]
